FAERS Safety Report 13376423 (Version 1)
Quarter: 2017Q1

REPORT INFORMATION
  Report Type: Spontaneous
  Country: US (occurrence: US)
  Receive Date: 20170328
  Receipt Date: 20170328
  Transmission Date: 20170429
  Serious: No
  Sender: FDA-Public Use
  Company Number: US-PFIZER INC-2017128140

PATIENT
  Age: 64 Year
  Sex: Female

DRUGS (1)
  1. XELJANZ XR [Suspect]
     Active Substance: TOFACITINIB CITRATE
     Dosage: 11 MG, UNK

REACTIONS (14)
  - Nasal disorder [Unknown]
  - Sinus disorder [Unknown]
  - Weight decreased [Unknown]
  - Raynaud^s phenomenon [Unknown]
  - Lymphocyte percentage increased [Unknown]
  - Fatigue [Unknown]
  - Neutrophil percentage decreased [Unknown]
  - Appetite disorder [Unknown]
  - Wheezing [Unknown]
  - Asthma [Unknown]
  - Abdominal pain [Unknown]
  - Blood glucose increased [Unknown]
  - Globulins increased [Unknown]
  - Back pain [Unknown]
